FAERS Safety Report 15953865 (Version 1)
Quarter: 2019Q1

REPORT INFORMATION
  Report Type: Spontaneous
  Country: US (occurrence: US)
  Receive Date: 20190212
  Receipt Date: 20190212
  Transmission Date: 20190417
  Serious: Yes (Other)
  Sender: FDA-Public Use
  Company Number: US-NOVOPROD-645523

PATIENT
  Sex: Female

DRUGS (1)
  1. NOVOLOG [Suspect]
     Active Substance: INSULIN ASPART
     Indication: TYPE 2 DIABETES MELLITUS
     Dosage: UNK
     Route: 058

REACTIONS (6)
  - Oedema [Not Recovered/Not Resolved]
  - Ovarian cancer [Unknown]
  - Peripheral vascular disorder [Unknown]
  - Neuropathy peripheral [Unknown]
  - Myocardial infarction [Unknown]
  - Breast cancer [Unknown]
